FAERS Safety Report 10006110 (Version 1)
Quarter: 2014Q1

REPORT INFORMATION
  Report Type: Report from Study
  Country: BR (occurrence: BR)
  Receive Date: 20140313
  Receipt Date: 20140313
  Transmission Date: 20141002
  Serious: Yes (Hospitalization, Other)
  Sender: FDA-Public Use
  Company Number: BR-ROCHE-1364267

PATIENT
  Age: 55 Year
  Sex: Female
  Weight: 55 kg

DRUGS (4)
  1. ACTEMRA [Suspect]
     Indication: RHEUMATOID ARTHRITIS
     Dosage: MOST RECENT INFUSION WAS ON 05/FEB/2014
     Route: 065
     Dates: start: 20110922
  2. ARAVA [Concomitant]
  3. NAPRIX [Concomitant]
  4. VYTORIN [Concomitant]

REACTIONS (3)
  - Arthropathy [Unknown]
  - Pain [Unknown]
  - Blood cholesterol increased [Unknown]
